FAERS Safety Report 7457330-9 (Version None)
Quarter: 2011Q2

REPORT INFORMATION
  Report Type: 
  Country: None (occurrence: None)
  Receive Date: 20110504
  Receipt Date: 20110128
  Transmission Date: 20111010
  Serious: No
  Sender: FDA-Public Use
  Company Number: US-KINGPHARMUSA00001-K201100111

PATIENT

DRUGS (1)
  1. AVINZA [Suspect]
     Indication: PAIN
     Dosage: 30 MG, QD, UNK

REACTIONS (1)
  - DRUG EFFECT DECREASED [None]
